FAERS Safety Report 18447051 (Version 2)
Quarter: 2021Q1

REPORT INFORMATION
  Report Type: Spontaneous
  Country: US (occurrence: US)
  Receive Date: 20201030
  Receipt Date: 20210216
  Transmission Date: 20210419
  Serious: No
  Sender: FDA-Public Use
  Company Number: NVSC2020US284213

PATIENT
  Sex: Female

DRUGS (1)
  1. PREDNISOLONE ACETATE. [Suspect]
     Active Substance: PREDNISOLONE ACETATE
     Indication: PRODUCT USED FOR UNKNOWN INDICATION
     Dosage: UNK UNK, QID (5 ML)
     Route: 047

REACTIONS (3)
  - Eye pain [Unknown]
  - Foreign body in eye [Unknown]
  - Product quality issue [Unknown]
